FAERS Safety Report 18597456 (Version 1)
Quarter: 2020Q4

REPORT INFORMATION
  Report Type: Spontaneous
  Country: RO (occurrence: RO)
  Receive Date: 20201209
  Receipt Date: 20201209
  Transmission Date: 20210114
  Serious: Yes (Other)
  Sender: FDA-Public Use
  Company Number: RO-MYLANLABS-2020M1099821

PATIENT
  Age: 52 Year
  Sex: Female

DRUGS (9)
  1. TRASTUZUMAB. [Suspect]
     Active Substance: TRASTUZUMAB
     Indication: HER2 POSITIVE BREAST CANCER
     Dosage: 3.6 MILLIGRAM/KILOGRAM, Q3W
     Route: 065
     Dates: start: 202006
  2. PERTUZUMAB. [Suspect]
     Active Substance: PERTUZUMAB
     Dosage: TRASTUZUMAB+PERTUZUMAB+ANASTROZOLE
     Route: 065
     Dates: start: 201909, end: 202003
  3. TRASTUZUMAB. [Suspect]
     Active Substance: TRASTUZUMAB
     Dosage: TRASTUZUMAB + PERTUZUMAB
     Route: 065
     Dates: start: 201908
  4. DOCETAXEL. [Suspect]
     Active Substance: DOCETAXEL
     Indication: HER2 POSITIVE BREAST CANCER
     Dosage: DOCETAXEL + PERTUZUMAB, TRASTUZUMAB
     Route: 065
     Dates: start: 201901, end: 201905
  5. PERTUZUMAB. [Suspect]
     Active Substance: PERTUZUMAB
     Indication: HER2 POSITIVE BREAST CANCER
     Dosage: 4 SERIES
     Route: 065
     Dates: start: 201901, end: 201905
  6. TRASTUZUMAB. [Suspect]
     Active Substance: TRASTUZUMAB
     Dosage: TRASTUZUMAB + PERTUZUMAB+ ANASTROZOLE
     Route: 065
     Dates: start: 201909, end: 202003
  7. PERTUZUMAB. [Suspect]
     Active Substance: PERTUZUMAB
     Dosage: TRASTUZUMAB+PERTUZUMAB
     Route: 065
     Dates: start: 20190801
  8. TRASTUZUMAB. [Suspect]
     Active Substance: TRASTUZUMAB
     Indication: HER2 POSITIVE BREAST CANCER
     Dosage: 4 SERIES OF DOCETAXEL + TRASTUZUMAB + PERTUZUMAB
     Route: 065
     Dates: start: 201901, end: 201905
  9. ANASTROZOLE. [Suspect]
     Active Substance: ANASTROZOLE
     Indication: HER2 POSITIVE BREAST CANCER
     Dosage: TRASTUZUMAB+PERTUZUMAB+ANASTROZOLE
     Route: 065
     Dates: start: 201909, end: 202003

REACTIONS (4)
  - Aspartate aminotransferase increased [Unknown]
  - Alanine aminotransferase increased [Unknown]
  - Drug ineffective [Unknown]
  - Metastatic neoplasm [Unknown]
